FAERS Safety Report 5253918-4 (Version None)
Quarter: 2007Q1

REPORT INFORMATION
  Report Type: 
  Country: None (occurrence: None)
  Receive Date: 20070228
  Receipt Date: 20070228
  Transmission Date: 20070707
  Serious: Yes (Other)
  Sender: FDA-Public Use
  Company Number: None

PATIENT
  Sex: Male
  Weight: 112.0385 kg

DRUGS (1)
  1. ENALAPRIL MALEATE [Suspect]
     Indication: HYPERTENSION
     Dosage: 5 MG DAILY ONCE A DAY PO
     Route: 048
     Dates: start: 20061211

REACTIONS (2)
  - ANGIOEDEMA [None]
  - DYSPHAGIA [None]
